FAERS Safety Report 15553948 (Version 1)
Quarter: 2018Q4

REPORT INFORMATION
  Report Type: Other
  Country: US (occurrence: US)
  Receive Date: 20181026
  Receipt Date: 20181026
  Transmission Date: 20190205
  Serious: No
  Sender: FDA-Public Use
  Company Number: US-ALEMBIC PHARMACUETICALS LIMITED-2018SCAL000790

PATIENT

DRUGS (1)
  1. METOPROLOL TARTRATE. [Suspect]
     Active Substance: METOPROLOL TARTRATE
     Indication: PRODUCT USED FOR UNKNOWN INDICATION
     Dosage: UNK

REACTIONS (14)
  - Eating disorder [Unknown]
  - Poor quality sleep [Unknown]
  - Peripheral swelling [Unknown]
  - Chest discomfort [Unknown]
  - Cough [Unknown]
  - Asthenia [Unknown]
  - Chest pain [Unknown]
  - Respiratory tract congestion [Unknown]
  - Abdominal pain upper [Unknown]
  - Pollakiuria [Unknown]
  - Hyperhidrosis [Unknown]
  - Product substitution issue [Unknown]
  - Dyspnoea [Unknown]
  - Dyspepsia [Unknown]
